FAERS Safety Report 7338894-2 (Version None)
Quarter: 2011Q1

REPORT INFORMATION
  Report Type: 
  Country: None (occurrence: None)
  Receive Date: 20110308
  Receipt Date: 20110223
  Transmission Date: 20110831
  Serious: Yes (Death, Other)
  Sender: FDA-Public Use
  Company Number: US-CELGENEUS-163-20785-11023179

PATIENT

DRUGS (12)
  1. CARBAPENEMS [Concomitant]
     Indication: FEBRILE NEUTROPENIA
     Route: 065
  2. DOXORUBICIN [Suspect]
     Route: 065
  3. DEXAMETHASONE [Suspect]
     Route: 065
  4. VELCADE [Suspect]
     Route: 065
  5. FLUCONAZOLE [Concomitant]
     Indication: PROPHYLAXIS
     Route: 065
  6. ETOPOSIDE [Suspect]
     Route: 065
  7. THALOMID [Suspect]
     Route: 048
  8. MELPHALAN [Suspect]
     Dosage: 200 MILLIGRAM/SQ. METER
     Route: 065
  9. CYCLOPHOSPHAMIDE [Suspect]
     Route: 065
  10. LEVOFLOXACIN [Concomitant]
     Indication: PROPHYLAXIS
     Route: 065
  11. CISPLATIN [Suspect]
     Route: 065
  12. ACYCLOIVR [Concomitant]
     Indication: PROPHYLAXIS
     Route: 065

REACTIONS (3)
  - DISEASE PROGRESSION [None]
  - TOXICITY TO VARIOUS AGENTS [None]
  - DEATH [None]
